FAERS Safety Report 7726058-X (Version None)
Quarter: 2011Q3

REPORT INFORMATION
  Report Type: 
  Country: None (occurrence: None)
  Receive Date: 20110902
  Receipt Date: 20110829
  Transmission Date: 20111222
  Serious: Yes (Death, Other)
  Sender: FDA-Public Use
  Company Number: GR-ROCHE-799728

PATIENT
  Sex: Female

DRUGS (2)
  1. PACLITAXEL [Suspect]
     Dosage: DOSE ALSO REPORTED AS 175 MG/M2 EVERY THREE WEEKLY.
     Route: 065
  2. BEVACIZUMAB [Suspect]
     Dosage: DOSE ALSO REPORTED AS 15 UG/KG EVERY THREE WEEKLY.
     Route: 065

REACTIONS (21)
  - FEBRILE NEUTROPENIA [None]
  - ANGIOPATHY [None]
  - HAEMORRHAGE [None]
  - SEPSIS [None]
  - RESPIRATORY TRACT INFECTION [None]
  - SKIN DISORDER [None]
  - THROMBOCYTOPENIA [None]
  - HYPERTENSION [None]
  - NEUROPATHY PERIPHERAL [None]
  - BONE MARROW DISORDER [None]
  - BLOOD DISORDER [None]
  - LEUKOPENIA [None]
  - NEUTROPENIA [None]
  - METABOLIC DISORDER [None]
  - ANAEMIA [None]
  - PAIN [None]
  - INFECTION [None]
  - CARDIAC DISORDER [None]
  - GENERAL SYMPTOM [None]
  - LUNG DISORDER [None]
  - GASTROINTESTINAL DISORDER [None]
